FAERS Safety Report 7922609 (Version 3)
Quarter: 2015Q2

REPORT INFORMATION
  Report Type: Report from Study
  Country: US (occurrence: US)
  Receive Date: 20110429
  Receipt Date: 20150615
  Transmission Date: 20150821
  Serious: Yes (Other)
  Sender: FDA-Public Use
  Company Number: US-ASTRAZENECA-2010SE39883

PATIENT
  Age: 818 Month
  Sex: Female

DRUGS (12)
  1. PREMRIN [Concomitant]
  2. LOSARTAN POT [Concomitant]
     Indication: BLOOD PRESSURE ABNORMAL
     Route: 048
  3. NEXIUM [Suspect]
     Active Substance: ESOMEPRAZOLE MAGNESIUM
     Indication: ABDOMINAL DISCOMFORT
     Route: 048
  4. COREG [Concomitant]
     Active Substance: CARVEDILOL
     Indication: BLOOD PRESSURE ABNORMAL
     Route: 048
  5. TRAZODONE [Concomitant]
     Active Substance: TRAZODONE HYDROCHLORIDE
     Indication: NERVE INJURY
     Route: 048
     Dates: start: 1985
  6. LEVOTHROIDE [Concomitant]
     Indication: THYROID DISORDER
     Route: 048
     Dates: start: 2011
  7. NASONEX [Concomitant]
     Active Substance: MOMETASONE FUROATE
     Dosage: AS REQUIRED
     Route: 045
  8. ANASTROZOLE. [Suspect]
     Active Substance: ANASTROZOLE
     Indication: BREAST CANCER
     Route: 048
     Dates: start: 20140625
  9. METFORMIN [Concomitant]
     Active Substance: METFORMIN HYDROCHLORIDE
     Indication: DIABETES MELLITUS
     Route: 048
     Dates: start: 2007
  10. MELOXICAM. [Concomitant]
     Active Substance: MELOXICAM
     Route: 048
  11. WELLBUTRIN SR [Concomitant]
     Active Substance: BUPROPION HYDROCHLORIDE
     Indication: NERVE INJURY
     Route: 048
     Dates: start: 1985
  12. AVANDIA [Concomitant]
     Active Substance: ROSIGLITAZONE MALEATE
     Route: 048

REACTIONS (7)
  - Neuropathy peripheral [Unknown]
  - Off label use [Unknown]
  - Malaise [Unknown]
  - Breast cancer [Unknown]
  - Cough [Unknown]
  - Arthritis [Unknown]
  - Nasopharyngitis [Unknown]

NARRATIVE: CASE EVENT DATE: 201406
